FAERS Safety Report 11066099 (Version 2)
Quarter: 2015Q2

REPORT INFORMATION
  Report Type: Spontaneous
  Country: US (occurrence: US)
  Receive Date: 20150425
  Receipt Date: 20150525
  Transmission Date: 20150821
  Serious: No
  Sender: FDA-Public Use
  Company Number: US-JNJFOC-20130413975

PATIENT
  Age: 78 Year
  Sex: Female
  Weight: 75.75 kg

DRUGS (4)
  1. TOPICAL CREAMS [Concomitant]
     Active Substance: UNSPECIFIED INGREDIENT
     Route: 061
  2. LOSARTAN [Concomitant]
     Active Substance: LOSARTAN
     Route: 048
  3. SIMPONI [Suspect]
     Active Substance: GOLIMUMAB
     Indication: PSORIATIC ARTHROPATHY
     Route: 058
     Dates: start: 2010
  4. SIMPONI [Suspect]
     Active Substance: GOLIMUMAB
     Indication: PSORIATIC ARTHROPATHY
     Route: 058
     Dates: start: 20130221

REACTIONS (2)
  - Device malfunction [Recovered/Resolved]
  - Drug dose omission [Recovered/Resolved]

NARRATIVE: CASE EVENT DATE: 20130221
